FAERS Safety Report 5208672-9 (Version None)
Quarter: 2007Q1

REPORT INFORMATION
  Report Type: 
  Country: None (occurrence: None)
  Receive Date: 20070116
  Receipt Date: 20070105
  Transmission Date: 20070707
  Serious: Yes (Other)
  Sender: FDA-Public Use
  Company Number: PHBS2007JP00689

PATIENT
  Age: 68 Year
  Sex: Male

DRUGS (3)
  1. PREDONINE [Concomitant]
     Route: 065
  2. SUCRALFATE [Concomitant]
     Route: 065
  3. ZOMETA [Suspect]
     Indication: MULTIPLE MYELOMA
     Route: 065

REACTIONS (2)
  - OSTEONECROSIS [None]
  - PAIN [None]
